FAERS Safety Report 7767324-1 (Version None)
Quarter: 2011Q3

REPORT INFORMATION
  Report Type: 
  Country: None (occurrence: None)
  Receive Date: 20110922
  Receipt Date: 20110120
  Transmission Date: 20111222
  Serious: No
  Sender: FDA-Public Use
  Company Number: US-ASTRAZENECA-2011SE03547

PATIENT
  Age: 35 Year
  Sex: Female
  Weight: 63.5 kg

DRUGS (3)
  1. WELLBUTRIN [Concomitant]
     Indication: ANXIETY
  2. LITHIUM CARBONATE [Concomitant]
     Indication: MOOD SWINGS
  3. SEROQUEL XR [Suspect]
     Indication: SCHIZOPHRENIA
     Route: 048
     Dates: start: 20070101

REACTIONS (6)
  - DIZZINESS [None]
  - WEIGHT INCREASED [None]
  - VOMITING [None]
  - DRUG DOSE OMISSION [None]
  - TREMOR [None]
  - SOMNOLENCE [None]
